FAERS Safety Report 5399731-9 (Version None)
Quarter: 2007Q3

REPORT INFORMATION
  Report Type: 
  Country: None (occurrence: None)
  Receive Date: 20070727
  Receipt Date: 20070715
  Transmission Date: 20080115
  Serious: Yes (Other)
  Sender: FDA-Public Use
  Company Number: US-PFIZER INC-2007060158

PATIENT
  Sex: Male
  Weight: 114 kg

DRUGS (4)
  1. CHANTIX [Suspect]
     Indication: EX-SMOKER
     Route: 048
  2. LIPITOR [Concomitant]
  3. ACTOS [Concomitant]
     Indication: DIABETES MELLITUS
  4. CYMBALTA [Concomitant]

REACTIONS (6)
  - DRUG WITHDRAWAL SYNDROME [None]
  - FEELING ABNORMAL [None]
  - IRRITABILITY [None]
  - MUSCLE SPASMS [None]
  - PAIN [None]
  - TREMOR [None]
